FAERS Safety Report 24530982 (Version 1)
Quarter: 2024Q4

REPORT INFORMATION
  Report Type: Report from Study
  Country: ES (occurrence: ES)
  Receive Date: 20241021
  Receipt Date: 20241021
  Transmission Date: 20250115
  Serious: Yes (Other)
  Sender: ABBVIE
  Company Number: ES-ABBVIE-5969308

PATIENT

DRUGS (2)
  1. CARBIDOPA\LEVODOPA [Suspect]
     Active Substance: CARBIDOPA\LEVODOPA
     Indication: Parkinson^s disease
     Dosage: 240 MG/ML + 12 MG/ML SOLUCION PARA PERFUSION, LAST ADMIN DATE: OCT 2024
     Route: 058
     Dates: start: 20241007
  2. CARBIDOPA\LEVODOPA [Suspect]
     Active Substance: CARBIDOPA\LEVODOPA
     Dosage: ADJUSTMENTS TO THE DUODOPA SUBCUTANEOUS DOSAGE,  240 MG/ML + 12 MG/ML SOLUCION PARA PERFUSION
     Route: 058
     Dates: start: 202410

REACTIONS (3)
  - Device related infection [Not Recovered/Not Resolved]
  - Medical device site erythema [Unknown]
  - Medical device site warmth [Unknown]

NARRATIVE: CASE EVENT DATE: 20241001
